FAERS Safety Report 20637950 (Version 4)
Quarter: 2022Q2

REPORT INFORMATION
  Report Type: Spontaneous
  Country: DE (occurrence: DE)
  Receive Date: 20220325
  Receipt Date: 20220511
  Transmission Date: 20220721
  Serious: Yes (Congenital Anomaly)
  Sender: FDA-Public Use
  Company Number: DE-002147023-NVSC2022DE034274

PATIENT
  Sex: Male
  Weight: 2.97 kg

DRUGS (4)
  1. EMTRICITABINE\TENOFOVIR DISOPROXIL [Suspect]
     Active Substance: EMTRICITABINE\TENOFOVIR DISOPROXIL
     Indication: Product used for unknown indication
     Dosage: QD ( (MATERNAL DOSE: 245/200 MG/DAY))
     Route: 064
     Dates: start: 20210412
  2. EMTRICITABINE\TENOFOVIR DISOPROXIL [Suspect]
     Active Substance: EMTRICITABINE\TENOFOVIR DISOPROXIL
     Dosage: 445 MILLIGRAM, QD (MATERNAL DOSE: 445 MG, QD)
     Route: 064
     Dates: start: 20210412
  3. RALTEGRAVIR [Suspect]
     Active Substance: RALTEGRAVIR
     Indication: Product used for unknown indication
     Dosage: (MATERNAL DOSE: 2X400 MG)
     Route: 064
     Dates: start: 20210412
  4. RALTEGRAVIR [Suspect]
     Active Substance: RALTEGRAVIR
     Dosage: 800 MILLIGRAM, QD ((MATERNAL DOSE: 800 MG, QD )
     Route: 064
     Dates: start: 20210412

REACTIONS (2)
  - Polydactyly [Unknown]
  - Foetal exposure during pregnancy [Recovered/Resolved]

NARRATIVE: CASE EVENT DATE: 20210412
